FAERS Safety Report 24228827 (Version 2)
Quarter: 2024Q4

REPORT INFORMATION
  Report Type: Spontaneous
  Country: IT (occurrence: IT)
  Receive Date: 20240820
  Receipt Date: 20241217
  Transmission Date: 20250115
  Serious: Yes (Death, Other)
  Sender: MYLAN
  Company Number: IT-LIPOMED-20240105

PATIENT
  Age: 40 Year
  Sex: Male

DRUGS (9)
  1. DOXORUBICIN [Suspect]
     Active Substance: DOXORUBICIN
     Indication: Hodgkin^s disease
     Dosage: 35 MG/M2 DURING CYCLE 1 TO 4 ON DD 1 AND 11 AND 25 MG/M2 DURING CYCLE 5 TO 6 ON DD 1 AND 11
     Route: 065
  2. DOXORUBICIN [Suspect]
     Active Substance: DOXORUBICIN
     Dosage: 25 MG/M2 DURING CYCLE 1 TO 4 ON DD 1 AND 11 AND 25 MG/M2 DURING CYCLE 5 TO 6 ON DD 1 AND 11
     Route: 065
  3. DACARBAZINE [Suspect]
     Active Substance: DACARBAZINE
     Indication: Hodgkin^s disease
     Dosage: 375 MILLIGRAM/SQ. METER (375 MG/M2 DURING 6 CYCLES ON DD 1 AND 11)
     Route: 065
  4. DACARBAZINE [Suspect]
     Active Substance: DACARBAZINE
     Dosage: UNK, CYCLE
     Route: 065
  5. VINBLASTINE [Suspect]
     Active Substance: VINBLASTINE
     Indication: Hodgkin^s disease
     Dosage: 6 MILLIGRAM/SQ. METER (6 MG/M2 DURING 6 CYCLES ON DD 1 AND 11)
     Route: 065
  6. VINBLASTINE [Suspect]
     Active Substance: VINBLASTINE
     Dosage: UNK, CYCLE
     Route: 065
  7. BLEOMYCIN [Suspect]
     Active Substance: BLEOMYCIN SULFATE
     Indication: Hodgkin^s disease
     Dosage: 10 MILLIGRAM/SQ. METER (10 MG/M2 DURING 6 CYCLES ON DD 1 AND 11)
     Route: 065
  8. BLEOMYCIN [Suspect]
     Active Substance: BLEOMYCIN SULFATE
     Dosage: UNK, CYCLE, UNK UNK, QCY
     Route: 065
  9. LENOGRASTIM [Concomitant]
     Active Substance: LENOGRASTIM
     Indication: Colony stimulating factor therapy
     Dosage: ON DD 6 TO 8 AND 17 TO 19 IN CYCLES 1 TO 6
     Route: 065

REACTIONS (3)
  - Acute myeloid leukaemia [Fatal]
  - Endometrial cancer [Fatal]
  - Leukaemia [Fatal]
